FAERS Safety Report 7437369-X (Version None)
Quarter: 2011Q2

REPORT INFORMATION
  Report Type: 
  Country: None (occurrence: None)
  Receive Date: 20110426
  Receipt Date: 20110414
  Transmission Date: 20111010
  Serious: Yes (Other)
  Sender: FDA-Public Use
  Company Number: PHHY2011IN31713

PATIENT
  Age: 7 Year
  Sex: Male

DRUGS (2)
  1. RISPERIDONE [Suspect]
  2. METHYLPHENIDATE [Suspect]

REACTIONS (5)
  - INSOMNIA [None]
  - AKATHISIA [None]
  - RESTLESSNESS [None]
  - LIMB DISCOMFORT [None]
  - DYSKINESIA [None]
